FAERS Safety Report 9091096 (Version 1)
Quarter: 2013Q1

REPORT INFORMATION
  Report Type: Spontaneous
  Country: CA (occurrence: CA)
  Receive Date: 20130131
  Receipt Date: 20130131
  Transmission Date: 20140127
  Serious: Yes (Other)
  Sender: FDA-Public Use
  Company Number: PHHY2013CA003133

PATIENT
  Sex: Female

DRUGS (2)
  1. AFINITOR [Suspect]
     Indication: BREAST CANCER METASTATIC
     Dosage: 10 MG, QOD
     Route: 048
  2. AROMASIN [Concomitant]

REACTIONS (3)
  - Nerve compression [Unknown]
  - Mucosal inflammation [Unknown]
  - Rash generalised [Recovered/Resolved]
